FAERS Safety Report 6442583-6 (Version None)
Quarter: 2009Q4

REPORT INFORMATION
  Report Type: 
  Country: None (occurrence: None)
  Receive Date: 20091117
  Receipt Date: 20091109
  Transmission Date: 20100525
  Serious: Yes (Other)
  Sender: FDA-Public Use
  Company Number: US-ASTRAZENECA-2007UW12894

PATIENT
  Age: 8720 Day
  Sex: Female
  Weight: 139.7 kg

DRUGS (26)
  1. SEROQUEL [Suspect]
     Indication: SLEEP DISORDER
     Route: 048
     Dates: start: 20011015
  2. SEROQUEL [Suspect]
     Indication: BIPOLAR DISORDER
     Route: 048
     Dates: start: 20011015
  3. SEROQUEL [Suspect]
     Indication: ANXIETY
     Route: 048
     Dates: start: 20011015
  4. SEROQUEL [Suspect]
     Route: 048
     Dates: start: 20011015
  5. SEROQUEL [Suspect]
     Route: 048
     Dates: start: 20011015
  6. SEROQUEL [Suspect]
     Route: 048
     Dates: start: 20011015
  7. RISPERDAL [Concomitant]
     Indication: ANXIETY
     Dates: start: 20040913
  8. RISPERDAL [Concomitant]
     Dates: start: 20050101, end: 20050101
  9. ABILIFY [Concomitant]
     Dates: start: 20050101
  10. GEODON [Concomitant]
     Dates: start: 20050101
  11. HALDOL [Concomitant]
     Dates: start: 20000101, end: 20030101
  12. THORAZINE [Concomitant]
     Dates: start: 20000101, end: 20030101
  13. EFFEXOR [Concomitant]
     Dates: start: 20011029
  14. DEPAKOTE [Concomitant]
     Route: 048
     Dates: start: 20011015
  15. CELEXA [Concomitant]
     Indication: DEPRESSIVE SYMPTOM
     Dosage: 20 MG TO 40 MG DAILY
     Route: 048
     Dates: start: 20011015
  16. ZYPREXA [Concomitant]
     Route: 048
     Dates: start: 20011015
  17. ALBUTEROL [Concomitant]
     Indication: DYSPNOEA
     Dosage: 2 PUFFS 4 TIMES A DAY IF NEEDED
     Route: 055
     Dates: start: 20011015
  18. AMBIEN [Concomitant]
     Indication: SLEEP DISORDER
     Dates: start: 20090407
  19. PREVACID [Concomitant]
     Route: 048
     Dates: start: 20011015
  20. MOTRIN [Concomitant]
     Dates: start: 20080223
  21. TRILEPTAL [Concomitant]
     Dates: start: 20090427
  22. COLACE [Concomitant]
     Dates: start: 20090427
  23. NITROGLYCERIN [Concomitant]
     Dates: start: 20040913
  24. MULTI-VITAMIN [Concomitant]
     Dosage: TWO TIMES A DAY
     Dates: start: 20080101
  25. VITAMIN D [Concomitant]
     Dosage: DAILY
     Dates: start: 20080101
  26. CALCIUM [Concomitant]
     Dosage: TWO TIMES A DAY
     Dates: start: 20080101

REACTIONS (7)
  - DRUG INEFFECTIVE [None]
  - GASTROOESOPHAGEAL REFLUX DISEASE [None]
  - NEOPLASM MALIGNANT [None]
  - OVARIAN CANCER [None]
  - OVARIAN LOW MALIGNANT POTENTIAL TUMOUR [None]
  - PANCREATITIS [None]
  - PANCREATITIS CHRONIC [None]
